FAERS Safety Report 11041319 (Version 2)
Quarter: 2015Q2

REPORT INFORMATION
  Report Type: Spontaneous
  Country: US (occurrence: US)
  Receive Date: 20150416
  Receipt Date: 20150525
  Transmission Date: 20150821
  Serious: No
  Sender: FDA-Public Use
  Company Number: US-JNJFOC-20140214999

PATIENT
  Age: 36 Year
  Sex: Male
  Weight: 95.26 kg

DRUGS (4)
  1. XARELTO [Suspect]
     Active Substance: RIVAROXABAN
     Indication: PULMONARY THROMBOSIS
     Route: 048
     Dates: start: 20131031
  2. XANAX [Concomitant]
     Active Substance: ALPRAZOLAM
     Indication: TINNITUS
     Route: 048
     Dates: start: 201305
  3. BABY ASPIRIN [Concomitant]
     Active Substance: ASPIRIN
     Indication: ANTICOAGULANT THERAPY
     Route: 048
     Dates: start: 20131031
  4. LYRICA [Concomitant]
     Active Substance: PREGABALIN
     Indication: TINNITUS
     Route: 048
     Dates: start: 201305

REACTIONS (3)
  - Dry skin [Not Recovered/Not Resolved]
  - Alopecia [Not Recovered/Not Resolved]
  - Weight increased [Not Recovered/Not Resolved]

NARRATIVE: CASE EVENT DATE: 20131031
